FAERS Safety Report 16324818 (Version 5)
Quarter: 2019Q2

REPORT INFORMATION
  Report Type: Spontaneous
  Country: FR (occurrence: FR)
  Receive Date: 20190517
  Receipt Date: 20190610
  Transmission Date: 20190711
  Serious: Yes (Other)
  Sender: FDA-Public Use
  Company Number: PHHY2019FR107992

PATIENT
  Age: 78 Year
  Sex: Female

DRUGS (19)
  1. VISMED [Suspect]
     Active Substance: HYALURONATE SODIUM
     Indication: OCULAR HYPERTENSION
  2. INDOCOLLYRE [Suspect]
     Active Substance: INDOMETHACIN
     Dosage: 1 GTT, QD
     Route: 047
     Dates: start: 201904, end: 201904
  3. TOBRADEX [Suspect]
     Active Substance: DEXAMETHASONE\TOBRAMYCIN
     Dosage: 1 GTT, QD
     Route: 047
     Dates: start: 20190502
  4. TOBREX [Suspect]
     Active Substance: TOBRAMYCIN
     Indication: PRODUCT USED FOR UNKNOWN INDICATION
     Dosage: UNK
     Route: 065
  5. REFRESH CELLUVISC [Suspect]
     Active Substance: CARBOXYMETHYLCELLULOSE SODIUM
     Indication: POSTOPERATIVE CARE
     Dosage: UNK
     Route: 047
     Dates: start: 20190413, end: 20190416
  6. VISMED [Suspect]
     Active Substance: HYALURONATE SODIUM
     Indication: EYE PAIN
  7. LACRYVISC [Suspect]
     Active Substance: CARBOMER
     Indication: PRODUCT USED FOR UNKNOWN INDICATION
     Dosage: UNK UNK, QD (ONCE AT BEDTIME)
     Route: 065
     Dates: start: 20190516
  8. MYDRIATICUM [Suspect]
     Active Substance: TROPICAMIDE
     Indication: POSTOPERATIVE CARE
     Dosage: 1 GTT, QD
     Route: 047
     Dates: start: 20190313, end: 20190416
  9. SYSTANE BALANCE [Suspect]
     Active Substance: PROPYLENE GLYCOL
     Indication: PRODUCT USED FOR UNKNOWN INDICATION
     Dosage: 2 GTT, QD (1 DROP IN BOTH EYES)
     Route: 065
     Dates: start: 20190516
  10. TOBRADEX [Suspect]
     Active Substance: DEXAMETHASONE\TOBRAMYCIN
     Indication: POSTOPERATIVE CARE
     Dosage: 1 GTT, QD (STOPPED ON 13 APR 2019 ONLY FOR THE RIGHT EYE)
     Route: 047
     Dates: start: 20190313, end: 20190416
  11. VITABACT [Suspect]
     Active Substance: PICLOXYDINE DIHYDROCHLORIDE
     Indication: POSTOPERATIVE CARE
     Dosage: UNK, QD
     Route: 047
     Dates: start: 20190310, end: 20190312
  12. VISMED [Suspect]
     Active Substance: HYALURONATE SODIUM
     Indication: EYE INFLAMMATION
     Dosage: UNK UNK, QD (STERILE SOLUTION FOR TOPICAL OPHTHALMIC USE; FOR 5 DAYS)
     Route: 047
     Dates: end: 20190416
  13. VITAMIN A DULCIS [Suspect]
     Active Substance: RETINOL
     Indication: PRODUCT USED FOR UNKNOWN INDICATION
     Dosage: UNK
     Route: 065
  14. THEALOZ [Suspect]
     Active Substance: TREHALOSE
     Indication: PRODUCT USED FOR UNKNOWN INDICATION
     Dosage: 2 GTT, QD (1 DROP IN BOTH EYES)
     Route: 065
     Dates: start: 20190516
  15. VITAMIN B12 [Suspect]
     Active Substance: CYANOCOBALAMIN
     Indication: POSTOPERATIVE CARE
     Dosage: UNK, QD (IN SINGLE DOSE UNITS)
     Route: 047
     Dates: start: 20190413, end: 20190416
  16. DACUDOSES [Suspect]
     Active Substance: BORIC ACID\SODIUM BORATE
     Indication: POSTOPERATIVE CARE
     Dosage: UNK
     Route: 047
  17. ODM 5 [Suspect]
     Active Substance: HYALURONATE SODIUM\SODIUM CHLORIDE
     Indication: EYE OEDEMA
     Dosage: UNK (USE IN LEFT EYE)
     Route: 047
     Dates: start: 20190410, end: 20190416
  18. VITAMINE A FAURE [Suspect]
     Active Substance: RETINOL
     Indication: PRODUCT USED FOR UNKNOWN INDICATION
     Dosage: 2 GTT, QD (DAILY DOSE OF 4 DROPS IN BOTH EYES.)
     Route: 047
     Dates: start: 20190502
  19. INDOCOLLYRE [Suspect]
     Active Substance: INDOMETHACIN
     Indication: PREOPERATIVE CARE
     Dosage: 1 GTT, QD
     Route: 047
     Dates: start: 20190310, end: 20190413

REACTIONS (10)
  - Eye oedema [Unknown]
  - Photophobia [Not Recovered/Not Resolved]
  - Eye pain [Not Recovered/Not Resolved]
  - Keratitis [Recovered/Resolved]
  - Off label use [Unknown]
  - Ocular hypertension [Unknown]
  - Foreign body sensation in eyes [Unknown]
  - Sinusitis [Unknown]
  - Eye irritation [Not Recovered/Not Resolved]
  - Eye inflammation [Unknown]

NARRATIVE: CASE EVENT DATE: 20190310
